FAERS Safety Report 11415550 (Version 2)
Quarter: 2016Q2

REPORT INFORMATION
  Report Type: Spontaneous
  Country: IN (occurrence: IN)
  Receive Date: 20150825
  Receipt Date: 20160513
  Transmission Date: 20160815
  Serious: Yes (Hospitalization)
  Sender: FDA-Public Use
  Company Number: IN-VIIV HEALTHCARE LIMITED-IN2015GSK121403

PATIENT
  Age: 16 Year
  Sex: Male

DRUGS (10)
  1. ABACAVIR. [Suspect]
     Active Substance: ABACAVIR
     Dosage: UNK, DOSE INCREASED
  2. EFAVIRENZ [Suspect]
     Active Substance: EFAVIRENZ
     Dosage: UNK, DOSE INCRESED
  3. ZIDOVUDINE. [Suspect]
     Active Substance: ZIDOVUDINE
     Indication: HIV INFECTION
     Dosage: 250 MG, BID
  4. ABACAVIR. [Suspect]
     Active Substance: ABACAVIR
     Dosage: UNK, REDUCED DOSE
  5. EFAVIRENZ [Suspect]
     Active Substance: EFAVIRENZ
     Dosage: UNK, DOSE DECRESED
  6. ZIDOVUDINE. [Suspect]
     Active Substance: ZIDOVUDINE
     Dosage: UNK, DOSE INCRESED
  7. EFAVIRENZ [Suspect]
     Active Substance: EFAVIRENZ
     Indication: HIV INFECTION
     Dosage: 300 MG, QD (AT NIGHT)
  8. ABACAVIR. [Suspect]
     Active Substance: ABACAVIR
     Indication: HIV INFECTION
     Dosage: 300 MG, (ONE IN THE MORNING AND TWO AT NIGHT)
  9. DIDANOSINE. [Suspect]
     Active Substance: DIDANOSINE
     Indication: HIV INFECTION
     Dosage: UNK
  10. ZIDOVUDINE. [Suspect]
     Active Substance: ZIDOVUDINE
     Dosage: UNK, DOSE REDUCED

REACTIONS (8)
  - Echopraxia [Recovered/Resolved]
  - Withdrawal syndrome [Unknown]
  - Poor quality sleep [Recovered/Resolved]
  - Mutism [Recovered/Resolved]
  - Agitation [Recovered/Resolved]
  - Catatonia [Recovered/Resolved]
  - Grimacing [Recovered/Resolved]
  - Brain scan abnormal [Unknown]
